FAERS Safety Report 5546983-8 (Version None)
Quarter: 2007Q4

REPORT INFORMATION
  Report Type: 
  Country: None (occurrence: None)
  Receive Date: 20071211
  Receipt Date: 20071129
  Transmission Date: 20080405
  Serious: Yes (Hospitalization)
  Sender: FDA-Public Use
  Company Number: FR-PFIZER INC-2007100759

PATIENT
  Sex: Female

DRUGS (5)
  1. ALDACTONE [Suspect]
     Indication: HYPERTENSION
     Route: 048
  2. HYPERIUM [Suspect]
     Indication: HYPERTENSION
     Route: 048
  3. VALIUM [Suspect]
     Indication: ANXIETY
     Route: 048
  4. HALOPERIDOL [Suspect]
     Indication: ANXIETY
     Dosage: DAILY DOSE:10DROP-TEXT:0.5 MG/ML
     Route: 048
     Dates: start: 20070524, end: 20070528
  5. DIFFU K [Suspect]
     Indication: HYPOKALAEMIA
     Route: 048
     Dates: start: 20070525, end: 20070601

REACTIONS (2)
  - FALL [None]
  - ORTHOSTATIC HYPOTENSION [None]
